FAERS Safety Report 7757051-9 (Version None)
Quarter: 2011Q3

REPORT INFORMATION
  Report Type: 
  Country: None (occurrence: None)
  Receive Date: 20110825
  Receipt Date: 20110426
  Transmission Date: 20111222
  Serious: No
  Sender: FDA-Public Use
  Company Number: 323975

PATIENT
  Age: 77 Year
  Sex: Male

DRUGS (3)
  1. VICTOZA [Suspect]
     Indication: TYPE 2 DIABETES MELLITUS
     Dosage: 1.8 MG, QD, SUBCUTANEOUS
     Route: 058
  2. GLYBURIDE [Concomitant]
  3. AMARYL [Concomitant]

REACTIONS (2)
  - GASTRIC DILATATION [None]
  - ABNORMAL FAECES [None]
